FAERS Safety Report 17021074 (Version 2)
Quarter: 2019Q4

REPORT INFORMATION
  Report Type: Other
  Country: FR (occurrence: FR)
  Receive Date: 20191112
  Receipt Date: 20191118
  Transmission Date: 20200122
  Serious: Yes (Hospitalization)
  Sender: FDA-Public Use
  Company Number: FR-ALSI-201900456

PATIENT
  Age: 15 Year
  Sex: Female

DRUGS (2)
  1. HYDROXYCARBAMIDE [Concomitant]
     Active Substance: HYDROXYUREA
     Route: 030
  2. NITROUS OXIDE; OXYGEN 50% [Suspect]
     Active Substance: NITROUS OXIDE\OXYGEN
     Indication: PAIN
     Route: 055

REACTIONS (5)
  - Neuropathy peripheral [Recovering/Resolving]
  - Vitamin B12 deficiency [Recovered/Resolved]
  - Pancytopenia [Unknown]
  - Hyperhomocysteinaemia [Recovered/Resolved]
  - Off label use [Recovered/Resolved]
